FAERS Safety Report 16444156 (Version 1)
Quarter: 2019Q2

REPORT INFORMATION
  Report Type: Spontaneous
  Country: US (occurrence: US)
  Receive Date: 20190618
  Receipt Date: 20190618
  Transmission Date: 20190711
  Serious: No
  Sender: FDA-Public Use
  Company Number: US-ASTRAZENECA-2019SE76749

PATIENT
  Age: 23154 Day
  Sex: Male
  Weight: 81.6 kg

DRUGS (1)
  1. FARXIGA [Suspect]
     Active Substance: DAPAGLIFLOZIN PROPANEDIOL
     Indication: TYPE 2 DIABETES MELLITUS
     Route: 048
     Dates: start: 20190514

REACTIONS (5)
  - Headache [Not Recovered/Not Resolved]
  - Nervousness [Not Recovered/Not Resolved]
  - Feeling jittery [Not Recovered/Not Resolved]
  - Influenza like illness [Not Recovered/Not Resolved]
  - Feeling abnormal [Not Recovered/Not Resolved]

NARRATIVE: CASE EVENT DATE: 20190516
